FAERS Safety Report 5884436-8 (Version None)
Quarter: 2008Q3

REPORT INFORMATION
  Report Type: 
  Country: None (occurrence: None)
  Receive Date: 20080915
  Receipt Date: 20080903
  Transmission Date: 20090109
  Serious: Yes (Other)
  Sender: FDA-Public Use
  Company Number: JP-PFIZER INC-2008074772

PATIENT
  Age: 53 Year
  Sex: Male

DRUGS (1)
  1. ZITHROMAX [Suspect]
     Dosage: DAILY DOSE:500MG
     Route: 048

REACTIONS (1)
  - BLOOD GLUCOSE INCREASED [None]
